FAERS Safety Report 21265315 (Version 1)
Quarter: 2022Q3

REPORT INFORMATION
  Report Type: Other
  Country: CA (occurrence: None)
  Receive Date: 20220829
  Receipt Date: 20220829
  Transmission Date: 20221027
  Serious: Yes (Hospitalization)
  Sender: FDA-Public Use
  Company Number: CA-ROCHE-3168469

PATIENT
  Age: 58 Year
  Sex: Male

DRUGS (8)
  1. RITUXAN [Suspect]
     Active Substance: RITUXIMAB
     Indication: Multiple sclerosis
     Route: 041
     Dates: start: 20161114
  2. ACETAMINOPHEN [Concomitant]
     Active Substance: ACETAMINOPHEN
     Route: 048
     Dates: start: 20161114
  3. ATIVAN [Concomitant]
     Active Substance: LORAZEPAM
  4. BACLOFEN [Concomitant]
     Active Substance: BACLOFEN
  5. DIPHENHYDRAMINE [Concomitant]
     Active Substance: DIPHENHYDRAMINE
     Route: 048
     Dates: start: 20161114
  6. GABAPENTIN [Concomitant]
     Active Substance: GABAPENTIN
     Indication: Muscle spasms
     Dates: start: 2021, end: 2021
  7. SOLU-MEDROL [Concomitant]
     Active Substance: METHYLPREDNISOLONE SODIUM SUCCINATE
     Route: 042
     Dates: start: 20161114
  8. TYLENOL [Concomitant]
     Active Substance: ACETAMINOPHEN
     Indication: Muscle spasms
     Dates: start: 2021

REACTIONS (6)
  - Vomiting [Unknown]
  - Consciousness fluctuating [Unknown]
  - White blood cell count abnormal [Unknown]
  - Pneumonia [Unknown]
  - Tooth loss [Unknown]
  - Oral pain [Unknown]

NARRATIVE: CASE EVENT DATE: 20220804
